FAERS Safety Report 6395027-7 (Version None)
Quarter: 2009Q4

REPORT INFORMATION
  Report Type: 
  Country: None (occurrence: None)
  Receive Date: 20091009
  Receipt Date: 20090929
  Transmission Date: 20100525
  Serious: Yes (Death, Other)
  Sender: FDA-Public Use
  Company Number: US-JNJFOC-20030901318

PATIENT
  Age: 51 Year
  Sex: Female

DRUGS (5)
  1. INFLIXIMAB [Suspect]
     Indication: RHEUMATOID ARTHRITIS
     Route: 042
  2. METHOTREXATE [Concomitant]
  3. AZATHIOPRINE [Concomitant]
  4. DAPSONE [Concomitant]
  5. PREDNISONE TAB [Concomitant]

REACTIONS (3)
  - DEATH [None]
  - HISTOPLASMOSIS DISSEMINATED [None]
  - PANNICULITIS LOBULAR [None]
